FAERS Safety Report 8984014 (Version 1)
Quarter: 2012Q4

REPORT INFORMATION
  Report Type: Spontaneous
  Country: BR (occurrence: None)
  Receive Date: 20121212
  Receipt Date: 20121212
  Transmission Date: 20130627
  Serious: Yes (Other)
  Sender: FDA-Public Use
  Company Number: BR-ACCORD-015502

PATIENT
  Age: 73 Year
  Sex: Male
  Weight: 59 kg

DRUGS (8)
  1. PACLITAXEL (PACLITAXEL) [Suspect]
     Indication: RECURRENT CANCER
     Route: 042
     Dates: start: 20121114, end: 20121114
  2. CISPLATIN(CISPLATIN) [Concomitant]
  3. DEXAMETHASONE(DEXAMETHASONE) [Concomitant]
  4. CLONAZEPAM(CLONAZEPAM) [Concomitant]
  5. ONDANSETRON(ONDANSETRON) [Concomitant]
  6. RANITIDINE(RANITIDINE) [Concomitant]
  7. DIPHENHYDRAMINE(DIPHENHYDRAMINE) [Concomitant]
  8. CLAVULIN(CLAVULIN) [Concomitant]

REACTIONS (4)
  - Erythema [None]
  - Throat tightness [None]
  - Blood pressure increased [None]
  - Body temperature decreased [None]
